FAERS Safety Report 10013412 (Version 2)
Quarter: 2014Q2

REPORT INFORMATION
  Report Type: Spontaneous
  Country: US (occurrence: US)
  Receive Date: 20140314
  Receipt Date: 20140410
  Transmission Date: 20141212
  Serious: No
  Sender: FDA-Public Use
  Company Number: US-PFIZER INC-2014074505

PATIENT
  Sex: Female

DRUGS (2)
  1. RELPAX [Suspect]
     Dosage: 40 MG, UNK
  2. RELPAX [Suspect]
     Dosage: 20 MG, UNK

REACTIONS (1)
  - Drug ineffective [Unknown]
